FAERS Safety Report 5294976-0 (Version None)
Quarter: 2007Q2

REPORT INFORMATION
  Report Type: 
  Country: None (occurrence: None)
  Receive Date: 20070412
  Receipt Date: 20070403
  Transmission Date: 20071010
  Serious: Yes (Hospitalization)
  Sender: FDA-Public Use
  Company Number: AU-ROCHE-491133

PATIENT
  Age: 63 Year
  Sex: Male

DRUGS (6)
  1. PEGASYS [Suspect]
     Indication: DRUG USE FOR UNKNOWN INDICATION
     Route: 065
     Dates: start: 20060415, end: 20061110
  2. NOTEN [Suspect]
     Route: 048
     Dates: start: 20061110, end: 20061117
  3. ARANESP [Concomitant]
     Dates: start: 20060715, end: 20061111
  4. COLGOUT [Concomitant]
     Indication: GOUT
     Dates: end: 20061117
  5. PROGOUT [Concomitant]
     Indication: GOUT
     Dates: end: 20061117
  6. AVAPRO [Concomitant]
     Dates: start: 20060415, end: 20061117

REACTIONS (2)
  - ERYTHEMA MULTIFORME [None]
  - STEVENS-JOHNSON SYNDROME [None]
